FAERS Safety Report 18966583 (Version 1)
Quarter: 2021Q1

REPORT INFORMATION
  Report Type: Spontaneous
  Country: HR (occurrence: HR)
  Receive Date: 20210303
  Receipt Date: 20210303
  Transmission Date: 20210420
  Serious: Yes (Other)
  Sender: FDA-Public Use
  Company Number: HR-TEVA-2021-HR-1885142

PATIENT
  Age: 17 Year
  Sex: Female

DRUGS (3)
  1. RISPERIDONE. [Suspect]
     Active Substance: RISPERIDONE
     Dosage: 1MILLIGRAM
     Route: 048
     Dates: start: 20210116, end: 20210116
  2. NORMABEL [Suspect]
     Active Substance: DIAZEPAM
     Dosage: 1 DF = 1 TBL:UNIT DOSE:2DOSAGEFORM
     Route: 048
     Dates: start: 20210116, end: 20210116
  3. PARACETAMOL [Suspect]
     Active Substance: ACETAMINOPHEN
     Dosage: 5GRAM
     Route: 048
     Dates: start: 20210116, end: 20210116

REACTIONS (3)
  - Intentional overdose [Unknown]
  - Suicide attempt [Unknown]
  - No adverse event [Unknown]

NARRATIVE: CASE EVENT DATE: 20210116
